FAERS Safety Report 10160656 (Version 1)
Quarter: 2014Q2

REPORT INFORMATION
  Report Type: Spontaneous
  Country: DE (occurrence: DE)
  Receive Date: 20140508
  Receipt Date: 20140508
  Transmission Date: 20141212
  Serious: Yes (Other)
  Sender: FDA-Public Use
  Company Number: DE-TEVA-479687GER

PATIENT
  Age: 67 Year
  Sex: Female

DRUGS (7)
  1. COTRIM FORTE-RATIOPHARM 960 MG TABLETTEN [Suspect]
     Indication: BACTERIAL VAGINOSIS
     Dosage: 1920 MILLIGRAM DAILY;
     Route: 048
     Dates: start: 20140423, end: 20140423
  2. COTRIM FORTE-RATIOPHARM 960 MG TABLETTEN [Interacting]
     Dosage: 960 MILLIGRAM DAILY;
     Route: 048
     Dates: start: 20140425, end: 20140425
  3. OPTIVIT [Interacting]
     Dosage: 1 DOSAGE FORMS DAILY;
     Route: 048
     Dates: start: 20140428, end: 20140428
  4. BENZODIAZEPIN [Concomitant]
     Indication: INITIAL INSOMNIA
     Route: 048
  5. INSIDON [Concomitant]
     Route: 048
  6. CIPROFLOXACIN [Concomitant]
     Route: 048
  7. LACTIC ACID BACTERIA [Concomitant]
     Route: 067

REACTIONS (19)
  - Haemorrhagic urticaria [Recovering/Resolving]
  - Malaise [Recovering/Resolving]
  - Movement disorder [Recovering/Resolving]
  - Depression [Recovering/Resolving]
  - Muscle spasms [Recovered/Resolved]
  - Tremor [Recovering/Resolving]
  - Restlessness [Unknown]
  - Confusional state [Unknown]
  - Musculoskeletal stiffness [Recovering/Resolving]
  - Throat irritation [Recovering/Resolving]
  - Arthralgia [Recovering/Resolving]
  - Dysuria [Recovering/Resolving]
  - Flushing [Recovering/Resolving]
  - Cough [Recovered/Resolved]
  - Dizziness [Unknown]
  - Drug prescribing error [Unknown]
  - Vomiting [Recovered/Resolved]
  - Drug interaction [Unknown]
  - Skin warm [None]
